FAERS Safety Report 8278639-5 (Version None)
Quarter: 2012Q2

REPORT INFORMATION
  Report Type: 
  Country: None (occurrence: None)
  Receive Date: 20120412
  Receipt Date: 20120220
  Transmission Date: 20120825
  Serious: No
  Sender: FDA-Public Use
  Company Number: US-ASTRAZENECA-2009UW15232

PATIENT
  Age: 751 Month
  Sex: Female
  Weight: 59 kg

DRUGS (17)
  1. NEXIUM [Suspect]
     Indication: SCAR
     Route: 048
     Dates: start: 20060101
  2. NEXIUM [Suspect]
     Indication: INFLAMMATION
     Route: 048
     Dates: start: 20060101
  3. NEXIUM [Suspect]
     Indication: OESOPHAGEAL DISORDER
     Route: 048
     Dates: start: 20060101
  4. METOPROLOL TARTRATE [Concomitant]
  5. ALLEGRA [Concomitant]
  6. ZOCOR [Concomitant]
  7. CALCIUM CARBONATE [Concomitant]
  8. VITAMIN TAB [Concomitant]
  9. NATURAL HORMONE [Concomitant]
  10. ZYRTEC [Concomitant]
  11. NEXIUM [Suspect]
     Indication: HIATUS HERNIA
     Route: 048
     Dates: start: 20060101
  12. TOPROL-XL [Concomitant]
  13. ASPIRIN/ADULT ASPIRIN [Concomitant]
  14. BONIVA [Concomitant]
  15. CRESTOR [Concomitant]
  16. NEXIUM [Suspect]
     Indication: GASTROOESOPHAGEAL REFLUX DISEASE
     Route: 048
     Dates: start: 20060101
  17. NORVASC/GENERIC NORVASC [Concomitant]
     Indication: BLOOD PRESSURE ABNORMAL

REACTIONS (4)
  - INAPPROPRIATE SCHEDULE OF DRUG ADMINISTRATION [None]
  - DRUG DOSE OMISSION [None]
  - DISEASE RECURRENCE [None]
  - OFF LABEL USE [None]
